FAERS Safety Report 7750033-2 (Version None)
Quarter: 2011Q3

REPORT INFORMATION
  Report Type: 
  Country: None (occurrence: None)
  Receive Date: 20110914
  Receipt Date: 20110913
  Transmission Date: 20111222
  Serious: Yes (Other)
  Sender: FDA-Public Use
  Company Number: GB-TEVA-300238ISR

PATIENT
  Age: 67 Year
  Sex: Male
  Weight: 59 kg

DRUGS (6)
  1. TRIMETHOPRIM [Suspect]
     Dates: start: 20110830
  2. ACETAMINOPHEN [Concomitant]
     Dates: start: 20110622
  3. AMOXICILLIN [Concomitant]
     Dates: start: 20110902
  4. TRIMETHOPRIM [Suspect]
     Dates: start: 20110902
  5. CALCEOS [Concomitant]
     Dates: start: 20110518
  6. SIMVASTATIN [Concomitant]
     Dates: start: 20110518

REACTIONS (2)
  - HEADACHE [None]
  - CHANGE OF BOWEL HABIT [None]
